FAERS Safety Report 6172374-5 (Version None)
Quarter: 2009Q2

REPORT INFORMATION
  Report Type: 
  Country: None (occurrence: None)
  Receive Date: 20090429
  Receipt Date: 20090420
  Transmission Date: 20091009
  Serious: Yes (Hospitalization)
  Sender: FDA-Public Use
  Company Number: PHHY2009DE06534

PATIENT
  Sex: Female

DRUGS (9)
  1. DICLOFENAC [Suspect]
  2. HYDROCHLOROTHIAZIDE [Concomitant]
  3. FENTANYL [Concomitant]
  4. PANTOZOL [Concomitant]
     Dosage: 40MG PER DAY
     Route: 048
     Dates: start: 20090212
  5. DIGITOXIN TAB [Concomitant]
  6. TETRAZEPAM [Concomitant]
  7. CALCILAC [Concomitant]
     Indication: OSTEOPOROSIS PROPHYLAXIS
     Dosage: UNK
     Route: 048
     Dates: start: 20090212
  8. TORASEMIDE [Concomitant]
     Dosage: 5MG PER DAY
     Route: 048
  9. RAMIPRIL [Concomitant]
     Dosage: 5MG PER DAY

REACTIONS (7)
  - ASCITES [None]
  - BIOPSY SKIN [None]
  - GLOMERULONEPHRITIS [None]
  - MELAENA [None]
  - PETECHIAE [None]
  - SUBILEUS [None]
  - VASCULITIS [None]
